FAERS Safety Report 6206830-8 (Version None)
Quarter: 2009Q2

REPORT INFORMATION
  Report Type: 
  Country: None (occurrence: None)
  Receive Date: 20090528
  Receipt Date: 20090517
  Transmission Date: 20091009
  Serious: Yes (Other)
  Sender: FDA-Public Use
  Company Number: A0786329A

PATIENT
  Sex: Female

DRUGS (2)
  1. ALLI [Suspect]
     Route: 048
  2. EXCEDRIN [Concomitant]

REACTIONS (3)
  - RECTAL DISCHARGE [None]
  - RECTAL HAEMORRHAGE [None]
  - TREATMENT NONCOMPLIANCE [None]
